FAERS Safety Report 8506115-0 (Version None)
Quarter: 2012Q3

REPORT INFORMATION
  Report Type: 
  Country: None (occurrence: None)
  Receive Date: 20120712
  Receipt Date: 20120628
  Transmission Date: 20120928
  Serious: Yes (Hospitalization)
  Sender: FDA-Public Use
  Company Number: FR-ALEXION PHARMACEUTICALS INC.-A201201267

PATIENT
  Sex: Male

DRUGS (6)
  1. MABTHERA [Suspect]
     Dosage: 500 MG, UNK
     Route: 042
     Dates: start: 20120213, end: 20120213
  2. AREDIA [Suspect]
     Dosage: 90 MG, 1 DAY
     Route: 042
     Dates: start: 20120405, end: 20120405
  3. MABTHERA [Suspect]
     Dosage: UNK
     Route: 042
     Dates: start: 20120227, end: 20120227
  4. MABTHERA [Suspect]
     Dosage: UNK
     Route: 042
     Dates: start: 20120217, end: 20120217
  5. SOLIRIS [Suspect]
     Indication: HAEMOLYTIC URAEMIC SYNDROME
     Dosage: 600 MG, QW
     Route: 042
     Dates: start: 20120312, end: 20120327
  6. MABTHERA [Suspect]
     Dosage: UNK
     Route: 042
     Dates: start: 20120305, end: 20120305

REACTIONS (8)
  - BRONCHIOLITIS [None]
  - PLEURAL EFFUSION [None]
  - PNEUMONIA [None]
  - RESPIRATORY DISTRESS [None]
  - RENAL IMPAIRMENT [None]
  - ANAPHYLACTIC SHOCK [None]
  - HYPERCALCAEMIA [None]
  - INTERSTITIAL LUNG DISEASE [None]
